FAERS Safety Report 16692166 (Version 1)
Quarter: 2019Q3

REPORT INFORMATION
  Report Type: Spontaneous
  Country: US (occurrence: US)
  Receive Date: 20190812
  Receipt Date: 20190812
  Transmission Date: 20191004
  Serious: No
  Sender: FDA-Public Use
  Company Number: US-MYLANLABS-2019M1070516

PATIENT
  Sex: Female

DRUGS (2)
  1. LIDOCAINE PATCH [Suspect]
     Active Substance: LIDOCAINE
     Dosage: UNK
     Route: 003
  2. LIDOCAINE PATCH [Suspect]
     Active Substance: LIDOCAINE
     Indication: SCOLIOSIS
     Dosage: UNK
     Route: 003
     Dates: start: 20190722

REACTIONS (4)
  - Therapeutic product effect delayed [Unknown]
  - Product use in unapproved indication [Unknown]
  - Product adhesion issue [Unknown]
  - Product quality issue [Unknown]
